FAERS Safety Report 15464301 (Version 1)
Quarter: 2018Q4

REPORT INFORMATION
  Report Type: Spontaneous
  Country: IT (occurrence: IT)
  Receive Date: 20181004
  Receipt Date: 20181004
  Transmission Date: 20190204
  Serious: Yes (Other)
  Sender: FDA-Public Use
  Company Number: PHHY2018IT116082

PATIENT
  Age: 48 Year
  Sex: Male

DRUGS (1)
  1. EXJADE [Suspect]
     Active Substance: DEFERASIROX
     Indication: THALASSAEMIA
     Dosage: 14 MG/KG, UNK
     Route: 065

REACTIONS (4)
  - Heart rate decreased [Unknown]
  - Asthenia [Unknown]
  - Loss of consciousness [Unknown]
  - Fatigue [Unknown]
